FAERS Safety Report 6908399-9 (Version None)
Quarter: 2010Q3

REPORT INFORMATION
  Report Type: 
  Country: None (occurrence: None)
  Receive Date: 20100803
  Receipt Date: 20100726
  Transmission Date: 20110219
  Serious: Yes (Hospitalization)
  Sender: FDA-Public Use
  Company Number: 9039997-2010-00009

PATIENT
  Sex: Female

DRUGS (2)
  1. LEVULAN [Suspect]
     Indication: ACTINIC KERATOSIS
     Dosage: 20 %, ONCE, TOPICAL
     Route: 061
     Dates: start: 20100531
  2. DIURETIC [Concomitant]

REACTIONS (2)
  - HYPONATRAEMIA [None]
  - VOMITING [None]
